FAERS Safety Report 5383569-2 (Version None)
Quarter: 2007Q3

REPORT INFORMATION
  Report Type: 
  Country: None (occurrence: None)
  Receive Date: 20070706
  Receipt Date: 20070620
  Transmission Date: 20080115
  Serious: Yes (Other)
  Sender: FDA-Public Use
  Company Number: CHNY2006JP03513

PATIENT
  Age: 62 Year
  Sex: Male

DRUGS (2)
  1. NICOTINE [Suspect]
     Indication: NICOTINE DEPENDENCE
     Dosage: 21 MG, QD, TRANSDERMAL
     Route: 062
     Dates: start: 20061005, end: 20061015
  2. NORVASC [Concomitant]

REACTIONS (5)
  - COLD SWEAT [None]
  - HOT FLUSH [None]
  - HYPERHIDROSIS [None]
  - LOSS OF CONSCIOUSNESS [None]
  - SYNCOPE [None]
